FAERS Safety Report 24251239 (Version 3)
Quarter: 2025Q2

REPORT INFORMATION
  Report Type: Spontaneous
  Country: US (occurrence: US)
  Receive Date: 20240826
  Receipt Date: 20250522
  Transmission Date: 20250717
  Serious: No
  Sender: INSUD PHARMA
  Company Number: US-INSUD PHARMA-2408US06395

PATIENT

DRUGS (1)
  1. SLYND [Suspect]
     Active Substance: DROSPIRENONE
     Indication: Prophylaxis
     Dosage: 1 DOSAGE FORM, QD
     Route: 048
     Dates: start: 202407

REACTIONS (2)
  - Abnormal withdrawal bleeding [Not Recovered/Not Resolved]
  - Intermenstrual bleeding [Recovered/Resolved]

NARRATIVE: CASE EVENT DATE: 20240101
